FAERS Safety Report 23588030 (Version 1)
Quarter: 2024Q1

REPORT INFORMATION
  Report Type: Spontaneous
  Country: GB (occurrence: GB)
  Receive Date: 20240301
  Receipt Date: 20240301
  Transmission Date: 20240410
  Serious: Yes (Life-Threatening, Other)
  Sender: FDA-Public Use
  Company Number: GB-GILEAD-2024-0663676

PATIENT
  Age: 59 Year
  Sex: Male

DRUGS (3)
  1. YESCARTA [Suspect]
     Active Substance: AXICABTAGENE CILOLEUCEL
     Indication: Diffuse large B-cell lymphoma
     Route: 065
  2. CYCLOPHOSPHAMIDE [Concomitant]
     Active Substance: CYCLOPHOSPHAMIDE
  3. FLUDARABINE [Concomitant]
     Active Substance: FLUDARABINE PHOSPHATE

REACTIONS (2)
  - Immune effector cell-associated neurotoxicity syndrome [Recovered/Resolved]
  - Cytokine release syndrome [Recovered/Resolved]
